FAERS Safety Report 5575270-7 (Version None)
Quarter: 2007Q4

REPORT INFORMATION
  Report Type: 
  Country: None (occurrence: None)
  Receive Date: 20071227
  Receipt Date: 20071217
  Transmission Date: 20080405
  Serious: Yes (Other)
  Sender: FDA-Public Use
  Company Number: CA-PFIZER INC-2007106616

PATIENT
  Age: 70 Year
  Sex: Female

DRUGS (3)
  1. CHANTIX [Suspect]
     Indication: SMOKING CESSATION THERAPY
     Route: 048
     Dates: start: 20070625, end: 20070813
  2. LIPITOR [Concomitant]
     Route: 048
  3. ACTONEL [Concomitant]
     Route: 048

REACTIONS (2)
  - APHONIA [None]
  - ORAL DISCOMFORT [None]
